FAERS Safety Report 15330460 (Version 1)
Quarter: 2018Q3

REPORT INFORMATION
  Report Type: Spontaneous
  Country: CR (occurrence: CR)
  Receive Date: 20180829
  Receipt Date: 20180829
  Transmission Date: 20181010
  Serious: Yes (Other)
  Sender: FDA-Public Use
  Company Number: CR-009507513-1808CRI011147

PATIENT
  Sex: Female

DRUGS (1)
  1. IMPLANON [Suspect]
     Active Substance: ETONOGESTREL
     Dosage: SUBDERMAL IMPLANT, 68 MG
     Route: 059

REACTIONS (1)
  - Lymphoma [Not Recovered/Not Resolved]
